FAERS Safety Report 11993874 (Version 2)
Quarter: 2016Q1

REPORT INFORMATION
  Report Type: Spontaneous
  Country: US (occurrence: US)
  Receive Date: 20160203
  Receipt Date: 20160303
  Transmission Date: 20160526
  Serious: Yes (Death, Other)
  Sender: FDA-Public Use
  Company Number: US-KOWA-16US000149

PATIENT
  Sex: Male

DRUGS (5)
  1. HMG COA REDUCTASE INHIBITORS [Suspect]
     Active Substance: UNSPECIFIED INGREDIENT
  2. LIVALO [Suspect]
     Active Substance: PITAVASTATIN CALCIUM
  3. METFORMIN [Concomitant]
     Active Substance: METFORMIN HYDROCHLORIDE
  4. LOPID [Suspect]
     Active Substance: GEMFIBROZIL
  5. GLYBURIDE. [Concomitant]
     Active Substance: GLYBURIDE

REACTIONS (7)
  - Cellulitis [Unknown]
  - Nephrolithiasis [Unknown]
  - Oesophageal injury [Unknown]
  - Abdominal pain [Unknown]
  - Impaired gastric emptying [Unknown]
  - Labelled drug-drug interaction medication error [Unknown]
  - Hepatic cirrhosis [Fatal]

NARRATIVE: CASE EVENT DATE: 20120819
